FAERS Safety Report 7247209-X (Version None)
Quarter: 2011Q1

REPORT INFORMATION
  Report Type: 
  Country: None (occurrence: None)
  Receive Date: 20110127
  Receipt Date: 20110119
  Transmission Date: 20110831
  Serious: Yes (Other)
  Sender: FDA-Public Use
  Company Number: IE-BAXTER-2011BH000731

PATIENT
  Age: 57 Year
  Sex: Female

DRUGS (6)
  1. EXTRANEAL [Suspect]
     Route: 033
     Dates: start: 20101122
  2. EXTRANEAL [Suspect]
     Indication: PERITONEAL DIALYSIS
     Route: 033
     Dates: start: 20091013
  3. EXTRANEAL [Suspect]
     Indication: INDWELLING CATHETER MANAGEMENT
     Route: 033
     Dates: start: 20091013
  4. EXTRANEAL [Suspect]
     Route: 033
     Dates: start: 20101122
  5. EXTRANEAL [Suspect]
     Route: 033
  6. EXTRANEAL [Suspect]
     Route: 033

REACTIONS (5)
  - BLOODY PERITONEAL EFFLUENT [None]
  - PERITONEAL CLOUDY EFFLUENT [None]
  - RENAL CYST RUPTURED [None]
  - PERITONITIS BACTERIAL [None]
  - ABDOMINAL PAIN [None]
